FAERS Safety Report 22778591 (Version 2)
Quarter: 2023Q4

REPORT INFORMATION
  Report Type: Report from Study
  Country: US (occurrence: US)
  Receive Date: 20230802
  Receipt Date: 20231010
  Transmission Date: 20240110
  Serious: Yes (Other)
  Sender: FDA-Public Use
  Company Number: US-OTSUKA-2023_019757

PATIENT
  Age: 33 Year
  Sex: Female

DRUGS (1)
  1. TOLVAPTAN [Suspect]
     Active Substance: TOLVAPTAN
     Indication: Congenital cystic kidney disease
     Dosage: UNK
     Route: 065
     Dates: start: 20220220

REACTIONS (4)
  - Hepatic cirrhosis [Unknown]
  - Renal cyst aspiration [Unknown]
  - Renal impairment [Unknown]
  - Liver injury [Unknown]

NARRATIVE: CASE EVENT DATE: 20230720
